FAERS Safety Report 9327767 (Version 2)
Quarter: 2013Q2

REPORT INFORMATION
  Report Type: Spontaneous
  Country: JP (occurrence: JP)
  Receive Date: 20130604
  Receipt Date: 20130619
  Transmission Date: 20140414
  Serious: Yes (Other)
  Sender: FDA-Public Use
  Company Number: JP-PFIZER INC-2013167544

PATIENT
  Age: 35 Year
  Sex: Male

DRUGS (13)
  1. METHOTREXATE [Suspect]
     Indication: COLLAGEN DISORDER
     Dosage: TOTAL 10 MG ONE WEEK (7.5 MG (3 TABLETS OF 2.5 MG) ON TUESDAY  AND 2.5 MG (1 TABLET) ON WEDNESDAY)
     Route: 048
  2. LIPITOR [Suspect]
     Dosage: 10 MG (1 TABLET)
     Route: 048
  3. HOKUNALIN [Concomitant]
     Dosage: UNK
     Route: 062
  4. ROCALTROL [Concomitant]
     Dosage: 2  CAPSULES
     Route: 048
  5. BIOFERMIN [Concomitant]
     Dosage: 3 G
  6. TALION OD [Concomitant]
     Dosage: 2 TABLETS
     Route: 048
  7. SLOW K [Concomitant]
     Dosage: 1200 MG (2 TABLETS OF 600 MG)
     Route: 048
  8. MARZULENE S [Concomitant]
     Dosage: 1 G
  9. CYTOTEC [Concomitant]
     Dosage: 400 MG (2 TABLETS OF 200 MG)
     Route: 048
  10. BAYASPIRIN [Concomitant]
     Dosage: 100 MG (1 TABLET)
     Route: 048
  11. FOLIAMIN [Concomitant]
     Dosage: 5 MG (1 TABLET ), WEEKLY (ON FRIDAY)
     Route: 048
  12. EPADEL S [Concomitant]
     Dosage: 2700 MG (3 PACKAGE OF 900 MG)
  13. MYSLEE [Concomitant]
     Dosage: 10 MG (1 TABLET)
     Route: 048

REACTIONS (2)
  - Off label use [Unknown]
  - Asthma [Recovering/Resolving]
